FAERS Safety Report 16623259 (Version 2)
Quarter: 2019Q3

REPORT INFORMATION
  Report Type: Spontaneous
  Country: US (occurrence: US)
  Receive Date: 20190723
  Receipt Date: 20190918
  Transmission Date: 20191004
  Serious: Yes (Other)
  Sender: FDA-Public Use
  Company Number: US-FRESENIUS KABI-FK201908043

PATIENT
  Sex: Male

DRUGS (1)
  1. DEFEROXAMINE MESYLATE. [Suspect]
     Active Substance: DEFEROXAMINE MESYLATE
     Indication: IRON OVERLOAD
     Dosage: UNKNOWN
     Route: 042

REACTIONS (3)
  - Speech disorder [Unknown]
  - Somnolence [Unknown]
  - Bacteraemia [Unknown]
